FAERS Safety Report 9851895 (Version 1)
Quarter: 2014Q1

REPORT INFORMATION
  Report Type: Spontaneous
  Country: BR (occurrence: BR)
  Receive Date: 20140129
  Receipt Date: 20140129
  Transmission Date: 20141002
  Serious: Yes (Hospitalization)
  Sender: FDA-Public Use
  Company Number: BR-JNJFOC-20140116610

PATIENT
  Age: 61 Year
  Sex: Female
  Weight: 71 kg

DRUGS (3)
  1. XARELTO [Suspect]
     Indication: EMBOLISM VENOUS
     Route: 048
     Dates: start: 201309, end: 20131224
  2. XARELTO [Suspect]
     Indication: PULMONARY EMBOLISM
     Route: 048
     Dates: start: 201309, end: 20131224
  3. SIMVASTATIN [Concomitant]
     Route: 048

REACTIONS (7)
  - Haematoma [Recovered/Resolved]
  - Melaena [Recovered/Resolved]
  - Haematuria [Recovered/Resolved]
  - Pneumonia [Unknown]
  - Prothrombin time prolonged [Unknown]
  - International normalised ratio abnormal [Unknown]
  - Haematocrit decreased [Unknown]
